FAERS Safety Report 8353998-3 (Version None)
Quarter: 2012Q2

REPORT INFORMATION
  Report Type: 
  Country: None (occurrence: None)
  Receive Date: 20120511
  Receipt Date: 20120502
  Transmission Date: 20120825
  Serious: Yes (Hospitalization)
  Sender: FDA-Public Use
  Company Number: US-ASTRAZENECA-2011SE49221

PATIENT
  Age: 73 Year
  Sex: Male

DRUGS (2)
  1. NEXIUM [Suspect]
     Route: 048
  2. SYMBICORT [Suspect]
     Route: 055

REACTIONS (6)
  - ADVERSE EVENT [None]
  - NASOPHARYNGITIS [None]
  - ASTHMA [None]
  - INTENTIONAL DRUG MISUSE [None]
  - DYSPNOEA [None]
  - ABDOMINAL PAIN UPPER [None]
